FAERS Safety Report 5144652-X (Version None)
Quarter: 2006Q4

REPORT INFORMATION
  Report Type: 
  Country: None (occurrence: None)
  Receive Date: 20061031
  Receipt Date: 20061013
  Transmission Date: 20070319
  Serious: Yes (Death)
  Sender: FDA-Public Use
  Company Number: DE200610002424

PATIENT
  Age: 68 Year
  Sex: Female

DRUGS (3)
  1. FORTEO [Suspect]
     Indication: OSTEOPOROSIS
     Dosage: 20 UNK, UNK, SUBCUTANEOUS
     Route: 058
     Dates: start: 20041004, end: 20060320
  2. FORTEO PEN (250MCG/ML) 9FORTEO PEN 250MCG/ML 93ML)0 PEN, DISPOSABLE [Concomitant]
  3. CALCIUM (CALCIUM) [Concomitant]

REACTIONS (2)
  - RESPIRATORY FAILURE [None]
  - SHOCK [None]
